FAERS Safety Report 17435201 (Version 1)
Quarter: 2020Q1

REPORT INFORMATION
  Report Type: Spontaneous
  Country: US (occurrence: US)
  Receive Date: 20200218
  Receipt Date: 20200218
  Transmission Date: 20200409
  Serious: No
  Sender: FDA-Public Use
  Company Number: None

PATIENT
  Age: 33 Year
  Sex: Female
  Weight: 101.25 kg

DRUGS (15)
  1. PRILOSEC [Concomitant]
     Active Substance: OMEPRAZOLE MAGNESIUM
  2. MULTIVITAMIN [Concomitant]
     Active Substance: VITAMINS
  3. CLAP MACHINE [Concomitant]
  4. GEMFIBROZIL. [Concomitant]
     Active Substance: GEMFIBROZIL
  5. CARBATROL [Concomitant]
     Active Substance: CARBAMAZEPINE
  6. MIDOL [Concomitant]
     Active Substance: IBUPROFEN
  7. METFORMIN [Concomitant]
     Active Substance: METFORMIN HYDROCHLORIDE
  8. LISINOPRIL. [Concomitant]
     Active Substance: LISINOPRIL
  9. BIRTH CONTROL [Concomitant]
     Active Substance: UNSPECIFIED INGREDIENT
  10. MELATONIN [Concomitant]
     Active Substance: MELATONIN
  11. VASCEPA [Concomitant]
     Active Substance: ICOSAPENT ETHYL
  12. CINGULAIR [Concomitant]
  13. TRULICITY [Suspect]
     Active Substance: DULAGLUTIDE
     Indication: TYPE 2 DIABETES MELLITUS
     Dosage: ?          QUANTITY:1 INJECTION(S);OTHER FREQUENCY:ONCE WEEKLY;OTHER ROUTE:SUBCUTANEOUS INJECTION?
     Route: 058
  14. VENTOLIN [Concomitant]
     Active Substance: ALBUTEROL SULFATE
  15. CINNAMON BARK [Concomitant]
     Active Substance: CINNAMON\HERBALS

REACTIONS (5)
  - Injection site bruising [None]
  - Blood glucose fluctuation [None]
  - Injection site irritation [None]
  - Dysmenorrhoea [None]
  - Heat therapy [None]

NARRATIVE: CASE EVENT DATE: 20200210
